FAERS Safety Report 9231983 (Version 1)
Quarter: 2013Q2

REPORT INFORMATION
  Report Type: Spontaneous
  Country: US (occurrence: US)
  Receive Date: 20130415
  Receipt Date: 20130415
  Transmission Date: 20140414
  Serious: Yes (Other)
  Sender: FDA-Public Use
  Company Number: CHPA2013US005986

PATIENT
  Age: 86 Year
  Sex: Female

DRUGS (2)
  1. EXCEDRIN EXTRA STRENGTH [Suspect]
     Indication: ARTHRALGIA
     Dosage: 1-2 OR WHATEVER I NEED DAILY
     Route: 048
  2. ALBUTEROL [Concomitant]

REACTIONS (4)
  - Joint effusion [Recovered/Resolved]
  - Wound [Not Recovered/Not Resolved]
  - Fall [Recovered/Resolved]
  - Underdose [Unknown]
